FAERS Safety Report 15157501 (Version 1)
Quarter: 2018Q3

REPORT INFORMATION
  Report Type: Spontaneous
  Country: FR (occurrence: FR)
  Receive Date: 20180718
  Receipt Date: 20180718
  Transmission Date: 20181010
  Serious: Yes (Hospitalization)
  Sender: FDA-Public Use
  Company Number: FR-TEVA-2018-FR-927864

PATIENT
  Age: 28 Year
  Sex: Male
  Weight: 65 kg

DRUGS (6)
  1. CODEINE [Suspect]
     Active Substance: CODEINE
     Route: 048
     Dates: start: 20180510, end: 20180510
  2. MORPHINE [Suspect]
     Active Substance: MORPHINE
     Route: 065
     Dates: start: 20180510, end: 20180510
  3. CHLORHYDRATE D^HYDROXYZINE [Suspect]
     Active Substance: HYDROXYZINE HYDROCHLORIDE
     Indication: POISONING DELIBERATE
     Route: 048
     Dates: start: 20180510, end: 20180510
  4. COLCHICINE. [Suspect]
     Active Substance: COLCHICINE
     Indication: POISONING DELIBERATE
     Route: 048
     Dates: start: 20180510, end: 20180510
  5. CHLORHYDRATE DE TRAMADOL [Suspect]
     Active Substance: TRAMADOL HYDROCHLORIDE
     Indication: POISONING DELIBERATE
     Route: 048
     Dates: start: 20180510, end: 20180510
  6. BIOCIDE (UNSPECIFIED) [Suspect]
     Active Substance: UNSPECIFIED INGREDIENT
     Indication: POISONING DELIBERATE
     Route: 048
     Dates: start: 20180510, end: 20180510

REACTIONS (5)
  - Poisoning deliberate [None]
  - Nausea [Recovered/Resolved]
  - Diarrhoea [Recovered/Resolved]
  - Vomiting [Recovered/Resolved]
  - Tachycardia [Recovered/Resolved]

NARRATIVE: CASE EVENT DATE: 20180510
